FAERS Safety Report 6118861-7 (Version None)
Quarter: 2009Q1

REPORT INFORMATION
  Report Type: 
  Country: None (occurrence: None)
  Receive Date: 20090316
  Receipt Date: 20090306
  Transmission Date: 20090719
  Serious: Yes (Hospitalization)
  Sender: FDA-Public Use
  Company Number: FR-CELGENEUS-056-C5013-09030384

PATIENT
  Sex: Male
  Weight: 47 kg

DRUGS (7)
  1. THALIDOMIDE [Suspect]
     Indication: MULTIPLE MYELOMA
     Route: 048
     Dates: start: 20090212
  2. PREDNISONE [Suspect]
     Indication: MULTIPLE MYELOMA
     Route: 065
     Dates: start: 20090212
  3. MELPHALAN [Suspect]
     Indication: MULTIPLE MYELOMA
     Route: 065
     Dates: start: 20090212
  4. FENOFIBRATE [Concomitant]
     Route: 048
     Dates: start: 20090129
  5. AVANDIA [Concomitant]
     Route: 048
     Dates: start: 20090129
  6. CLASTOBAN [Concomitant]
     Indication: PROPHYLAXIS
     Route: 048
     Dates: start: 20090211
  7. MIRCERA [Concomitant]
     Route: 058
     Dates: start: 20090129

REACTIONS (2)
  - BRONCHOPNEUMOPATHY [None]
  - FEBRILE BONE MARROW APLASIA [None]
